FAERS Safety Report 11214645 (Version 2)
Quarter: 2015Q3

REPORT INFORMATION
  Report Type: Spontaneous
  Country: FR (occurrence: FR)
  Receive Date: 20150624
  Receipt Date: 20150706
  Transmission Date: 20151125
  Serious: Yes (Other)
  Sender: FDA-Public Use
  Company Number: FR-009507513-1506FRA010846

PATIENT
  Age: 63 Year
  Sex: Male
  Weight: 95 kg

DRUGS (11)
  1. METHYLPREDNISOLONE. [Suspect]
     Active Substance: METHYLPREDNISOLONE
     Dosage: 80 MG, UNK
     Route: 042
     Dates: start: 20150422
  2. NEFOPAM [Concomitant]
     Active Substance: NEFOPAM
     Dosage: UNK
     Route: 048
  3. EMEND [Suspect]
     Active Substance: APREPITANT
     Dosage: 80 MG, ONCE
     Route: 048
     Dates: start: 20150423, end: 20150423
  4. ELOXATIN [Suspect]
     Active Substance: OXALIPLATIN
     Dosage: 200 MG, UNK
     Route: 042
     Dates: start: 20150422
  5. UROREC [Concomitant]
     Active Substance: SILODOSIN
     Dosage: 8 MG, QPM
     Route: 048
  6. AVODART [Concomitant]
     Active Substance: DUTASTERIDE
     Dosage: 0.5 MG, QD
     Route: 048
  7. EMEND [Suspect]
     Active Substance: APREPITANT
     Dosage: DAY 1: 125 MG, ONCE
     Route: 048
     Dates: start: 20150422, end: 20150422
  8. EMEND [Suspect]
     Active Substance: APREPITANT
     Dosage: 80 MG, ONCE
     Route: 048
     Dates: start: 20150424
  9. GEMCITABINE [Suspect]
     Active Substance: GEMCITABINE\GEMCITABINE HYDROCHLORIDE
     Dosage: DOSE: 2000 MG, FREQUENCY UNKNOWN
     Route: 042
     Dates: start: 20150422
  10. ONDANSETRON [Suspect]
     Active Substance: ONDANSETRON
     Dosage: 8 MG, QD
     Route: 042
     Dates: start: 20150422
  11. GEL LARMES [Concomitant]
     Dosage: 1DF IN THE MORNING, 1DF AT NOON, 1DF IN THE EVENING
     Route: 047

REACTIONS (5)
  - Drug reaction with eosinophilia and systemic symptoms [Recovering/Resolving]
  - General physical health deterioration [Recovering/Resolving]
  - Dermatitis exfoliative [Recovering/Resolving]
  - Pruritus [Recovering/Resolving]
  - Eosinophilia [Recovering/Resolving]

NARRATIVE: CASE EVENT DATE: 201505
